FAERS Safety Report 9334489 (Version 1)
Quarter: 2013Q2

REPORT INFORMATION
  Report Type: Spontaneous
  Country: US (occurrence: US)
  Receive Date: 20130606
  Receipt Date: 20130606
  Transmission Date: 20140414
  Serious: No
  Sender: FDA-Public Use
  Company Number: US-AMGEN-USASP2012083613

PATIENT
  Age: 53 Year
  Sex: Female

DRUGS (12)
  1. PROLIA [Suspect]
     Indication: OSTEOPOROSIS POSTMENOPAUSAL
     Dosage: UNK
     Dates: start: 20121221
  2. ADVAIR [Concomitant]
     Dosage: UNK
  3. DUONEB [Concomitant]
     Dosage: UNK
  4. ALBUTEROL                          /00139501/ [Concomitant]
     Dosage: UNK
  5. HYDROCHOROTHIAZIDE [Concomitant]
     Dosage: UNK
  6. NIFEDICAL [Concomitant]
  7. REMERON [Concomitant]
  8. OXYCODONE [Concomitant]
  9. FISH OIL [Concomitant]
     Dosage: UNK
  10. MULTIVITAMIN                       /00097801/ [Concomitant]
     Dosage: UNK
  11. GARLIC                             /01570501/ [Concomitant]
     Dosage: UNK
  12. IBUPROFEN [Concomitant]
     Dosage: UNK

REACTIONS (5)
  - Nausea [Unknown]
  - Malaise [Unknown]
  - Vertigo [Unknown]
  - Skin infection [Unknown]
  - Rash [Unknown]
